FAERS Safety Report 10048645 (Version 2)
Quarter: 2014Q2

REPORT INFORMATION
  Report Type: Spontaneous
  Country: US (occurrence: None)
  Receive Date: 20140327
  Receipt Date: 20140418
  Transmission Date: 20141212
  Serious: Yes (Death, Hospitalization)
  Sender: FDA-Public Use
  Company Number: UTC-046151

PATIENT
  Age: 56 Year
  Sex: Female
  Weight: 73.48 kg

DRUGS (3)
  1. REMODULIN (1 MILLIGRAM/MILLILITERS, INJECTION FOR INFUSION) (TREPROSTINIL SODIUM) [Suspect]
     Indication: COR PULMONALE CHRONIC
     Dosage: 51.84 UG/KG (0.036 UG/KG, 1 IN 1 MIN), INTRAVENOUS DRIP
     Route: 041
     Dates: start: 20131028
  2. COUMADIN (WARFARIN SODIUM) [Concomitant]
  3. VIAGRA (SILDENAFIL) [Concomitant]

REACTIONS (3)
  - Death [None]
  - Right ventricular failure [None]
  - Cardiogenic shock [None]
